FAERS Safety Report 4836263-8 (Version None)
Quarter: 2005Q4

REPORT INFORMATION
  Report Type: 
  Country: None (occurrence: None)
  Receive Date: 20051121
  Receipt Date: 20051121
  Transmission Date: 20060501
  Serious: Yes (Life-Threatening, Hospitalization)
  Sender: FDA-Public Use
  Company Number: None

PATIENT
  Age: 58 Year
  Sex: Male
  Weight: 144 kg

DRUGS (1)
  1. TIKOSYN [Suspect]
     Indication: ATRIAL FIBRILLATION
     Dosage: 500 MCG   TWICE DAILY   PO
     Route: 048
     Dates: start: 20051104, end: 20051116

REACTIONS (3)
  - ELECTROCARDIOGRAM QT PROLONGED [None]
  - SYNCOPE [None]
  - VENTRICULAR TACHYCARDIA [None]
